FAERS Safety Report 24674025 (Version 1)
Quarter: 2024Q4

REPORT INFORMATION
  Report Type: Spontaneous
  Country: FR (occurrence: FR)
  Receive Date: 20241128
  Receipt Date: 20241128
  Transmission Date: 20250115
  Serious: Yes (Hospitalization)
  Sender: RANBAXY
  Company Number: FR-AFSSAPS-BS2024000724

PATIENT
  Age: 80 Year
  Sex: Male
  Weight: 93 kg

DRUGS (2)
  1. SERTRALINE [Suspect]
     Active Substance: SERTRALINE HYDROCHLORIDE
     Indication: Depression
     Dosage: 50 MILLIGRAM, DAILY
     Route: 048
  2. INNOHEP [Suspect]
     Active Substance: TINZAPARIN SODIUM
     Indication: Atrial fibrillation
     Dosage: 18000 INTERNATIONAL UNIT, DAILY
     Route: 058
     Dates: start: 20240610, end: 20240709

REACTIONS (1)
  - Haematuria [Recovered/Resolved]

NARRATIVE: CASE EVENT DATE: 20240709
